FAERS Safety Report 18347196 (Version 3)
Quarter: 2021Q1

REPORT INFORMATION
  Report Type: Other
  Country: US (occurrence: US)
  Receive Date: 20201005
  Receipt Date: 20210111
  Transmission Date: 20210419
  Serious: Yes (Death, Hospitalization)
  Sender: FDA-Public Use
  Company Number: US-ROCHE-2685682

PATIENT
  Age: 40 Year
  Sex: Female

DRUGS (7)
  1. GABAPENTIN. [Concomitant]
     Active Substance: GABAPENTIN
     Route: 048
  2. ACETAMINOPHEN. [Concomitant]
     Active Substance: ACETAMINOPHEN
  3. SOLU?MEDROL [Concomitant]
     Active Substance: METHYLPREDNISOLONE SODIUM SUCCINATE
     Route: 042
     Dates: start: 20190815
  4. DIPHENHYDRAMINE. [Concomitant]
     Active Substance: DIPHENHYDRAMINE
  5. NORCO [Concomitant]
     Active Substance: ACETAMINOPHEN\HYDROCODONE BITARTRATE
     Indication: MIGRAINE
     Dosage: 10/325 AS NEEDED
     Route: 048
     Dates: start: 20190802
  6. OCREVUS [Suspect]
     Active Substance: OCRELIZUMAB
     Indication: RELAPSING MULTIPLE SCLEROSIS
     Dosage: NEXT INFUSION WAS RECEIVED ON 27/FEB/2020?MOST RECENT INFUSION WAS RECEIVED ON 27/AUG/2020
     Route: 042
     Dates: start: 20190815
  7. ALBUTEROL HFA [Concomitant]
     Active Substance: ALBUTEROL SULFATE
     Indication: ASTHMA
     Dosage: 2 PUFFS EVERY 4 HOURS AS NEEDED
     Dates: start: 20190418

REACTIONS (14)
  - Thunderclap headache [Fatal]
  - Neurological symptom [Unknown]
  - Photopsia [Fatal]
  - Haemodynamic instability [Fatal]
  - Abdominal pain [Fatal]
  - Splenomegaly [Fatal]
  - Urinary tract infection [Fatal]
  - Magnetic resonance imaging abnormal [Fatal]
  - Hemiparesis [Fatal]
  - Acute promyelocytic leukaemia [Fatal]
  - Disseminated intravascular coagulation [Fatal]
  - Splenic infarction [Fatal]
  - Leukocytosis [Unknown]
  - Thrombocytopenia [Unknown]

NARRATIVE: CASE EVENT DATE: 202009
